FAERS Safety Report 5132602-1 (Version None)
Quarter: 2006Q4

REPORT INFORMATION
  Report Type: 
  Country: None (occurrence: None)
  Receive Date: 20061017
  Receipt Date: 20061004
  Transmission Date: 20070319
  Serious: Yes (Other)
  Sender: FDA-Public Use
  Company Number: 230558

PATIENT
  Age: 59 Year
  Sex: Male

DRUGS (4)
  1. RAPTIVA [Suspect]
     Indication: PSORIASIS
     Dosage: 1 ML, 1/WEEK, SUBCUTANEOUS
     Route: 058
     Dates: start: 20060220
  2. LISINOPRIL [Concomitant]
  3. QUINIDINE SULFATE [Concomitant]
  4. FUROSEMIDE [Concomitant]

REACTIONS (3)
  - PARAPSORIASIS [None]
  - PHOTOSENSITIVITY REACTION [None]
  - T-CELL LYMPHOMA [None]
